FAERS Safety Report 5890464-9 (Version None)
Quarter: 2008Q3

REPORT INFORMATION
  Report Type: 
  Country: None (occurrence: None)
  Receive Date: 20080922
  Receipt Date: 20080909
  Transmission Date: 20090109
  Serious: Yes (Death, Other)
  Sender: FDA-Public Use
  Company Number: TR-JNJFOC-20080903556

PATIENT

DRUGS (1)
  1. INFLIXIMAB [Suspect]
     Indication: SECONDARY AMYLOIDOSIS
     Route: 042

REACTIONS (1)
  - URINARY BLADDER HAEMORRHAGE [None]
